FAERS Safety Report 12714481 (Version 1)
Quarter: 2016Q3

REPORT INFORMATION
  Report Type: Spontaneous
  Country: US (occurrence: US)
  Receive Date: 20160905
  Receipt Date: 20160905
  Transmission Date: 20161109
  Serious: No
  Sender: FDA-Public Use
  Company Number: US-JAZZ-2016-US-008958

PATIENT
  Sex: Female

DRUGS (26)
  1. HYDROCODONE/ACETAMINOPHEN [Concomitant]
     Active Substance: ACETAMINOPHEN\HYDROCODONE
  2. DEPO-ESTRADIOL [Concomitant]
     Active Substance: ESTRADIOL CYPIONATE
  3. BACLOFEN. [Concomitant]
     Active Substance: BACLOFEN
  4. TIZANIDINE. [Concomitant]
     Active Substance: TIZANIDINE
  5. IMITREX [Concomitant]
     Active Substance: SUMATRIPTAN SUCCINATE
  6. TOPAMAX [Concomitant]
     Active Substance: TOPIRAMATE
  7. CLONIDINE. [Concomitant]
     Active Substance: CLONIDINE
  8. EFFEXOR [Concomitant]
     Active Substance: VENLAFAXINE HYDROCHLORIDE
  9. GLIMEPIRIDE. [Concomitant]
     Active Substance: GLIMEPIRIDE
  10. PROVIGIL [Concomitant]
     Active Substance: MODAFINIL
  11. MAXALT [Concomitant]
     Active Substance: RIZATRIPTAN BENZOATE
  12. BOTOX [Concomitant]
     Active Substance: ONABOTULINUMTOXINA
  13. METFORMIN HCL [Concomitant]
     Active Substance: METFORMIN HYDROCHLORIDE
  14. XYREM [Suspect]
     Active Substance: SODIUM OXYBATE
     Indication: NARCOLEPSY
     Dosage: 2.25 G, BID
     Route: 048
     Dates: start: 200305, end: 2004
  15. XYREM [Suspect]
     Active Substance: SODIUM OXYBATE
     Indication: CATAPLEXY
     Dosage: 3 G, BID
     Route: 048
     Dates: start: 200403, end: 2010
  16. OMEPRAZOLE. [Concomitant]
     Active Substance: OMEPRAZOLE
  17. TRIAMTERENE AND HYDROCHLOROTHIAZIDE [Concomitant]
     Active Substance: HYDROCHLOROTHIAZIDE\TRIAMTERENE
  18. DILTIAZEM. [Concomitant]
     Active Substance: DILTIAZEM
  19. KLOR-CON M10 [Concomitant]
     Active Substance: POTASSIUM CHLORIDE
  20. SEROQUEL [Concomitant]
     Active Substance: QUETIAPINE FUMARATE
  21. XYREM [Suspect]
     Active Substance: SODIUM OXYBATE
     Dosage: 4.5 G, BID
     Route: 048
     Dates: start: 201007
  22. DEXILANT [Concomitant]
     Active Substance: DEXLANSOPRAZOLE
  23. ADDERALL [Concomitant]
     Active Substance: AMPHETAMINE ASPARTATE\AMPHETAMINE SULFATE\DEXTROAMPHETAMINE SACCHARATE\DEXTROAMPHETAMINE SULFATE
  24. LISINOPRIL. [Concomitant]
     Active Substance: LISINOPRIL
  25. PRAVACHOL [Concomitant]
     Active Substance: PRAVASTATIN SODIUM
  26. FUROSEMIDE. [Concomitant]
     Active Substance: FUROSEMIDE

REACTIONS (1)
  - Therapeutic product ineffective [Unknown]
